FAERS Safety Report 6337809-3 (Version None)
Quarter: 2009Q3

REPORT INFORMATION
  Report Type: 
  Country: None (occurrence: None)
  Receive Date: 20090902
  Receipt Date: 20090825
  Transmission Date: 20100115
  Serious: Yes (Hospitalization)
  Sender: FDA-Public Use
  Company Number: A0803616A

PATIENT
  Age: 49 Year
  Sex: Male
  Weight: 119.1 kg

DRUGS (8)
  1. AVANDIA [Suspect]
     Indication: DIABETES MELLITUS
     Dosage: 8MG PER DAY
     Route: 048
     Dates: start: 20040911, end: 20060525
  2. PREVACID [Concomitant]
  3. POTASSIUM CHLORIDE [Concomitant]
  4. BACTRIM [Concomitant]
  5. CYTOXAN [Concomitant]
  6. PREDNISONE [Concomitant]
  7. INSULIN [Concomitant]
  8. ARANESP [Concomitant]

REACTIONS (1)
  - CEREBROVASCULAR ACCIDENT [None]
